FAERS Safety Report 25093069 (Version 1)
Quarter: 2025Q1

REPORT INFORMATION
  Report Type: Spontaneous
  Country: US (occurrence: US)
  Receive Date: 20250319
  Receipt Date: 20250319
  Transmission Date: 20250409
  Serious: Yes (Other)
  Sender: Alora Pharma
  Company Number: US-OSMOTICA PHARMACEUTICALS-2025ALO00108

PATIENT
  Sex: Male

DRUGS (4)
  1. VENLAFAXINE [Suspect]
     Active Substance: VENLAFAXINE HYDROCHLORIDE
     Route: 064
  2. BUPROPION [Suspect]
     Active Substance: BUPROPION
     Route: 064
  3. QUETIAPINE [Suspect]
     Active Substance: QUETIAPINE
     Route: 064
  4. GABAPENTIN [Concomitant]
     Active Substance: GABAPENTIN
     Route: 064

REACTIONS (10)
  - Encephalopathy [Recovered/Resolved]
  - Clonus [Recovered/Resolved]
  - Drug interaction [Recovered/Resolved]
  - Serotonin syndrome [Recovered/Resolved]
  - Hyperreflexia [Recovered/Resolved]
  - Hypotonia [Recovered/Resolved]
  - Toxicity to various agents [Recovered/Resolved]
  - Seizure [Recovered/Resolved]
  - Hypertonia [Recovered/Resolved]
  - Foetal exposure during pregnancy [Recovered/Resolved]
